FAERS Safety Report 18039759 (Version 3)
Quarter: 2022Q3

REPORT INFORMATION
  Report Type: Spontaneous
  Country: US (occurrence: None)
  Receive Date: 20200717
  Receipt Date: 20220724
  Transmission Date: 20221027
  Serious: Yes (Other)
  Sender: FDA-Public Use
  Company Number: 2020SE89204

PATIENT
  Age: 17774 Day
  Sex: Female
  Weight: 90.7 kg

DRUGS (68)
  1. NEXIUM [Suspect]
     Active Substance: ESOMEPRAZOLE MAGNESIUM
     Indication: Gastrooesophageal reflux disease
     Dosage: 40.0MG UNKNOWN
     Route: 048
     Dates: start: 2000, end: 2018
  2. NEXIUM [Suspect]
     Active Substance: ESOMEPRAZOLE MAGNESIUM
     Indication: Gastrooesophageal reflux disease
     Dosage: 40.0MG UNKNOWN
     Route: 048
     Dates: start: 20120114
  3. NEXIUM [Suspect]
     Active Substance: ESOMEPRAZOLE MAGNESIUM
     Indication: Gastrooesophageal reflux disease
     Dosage: 40.0MG UNKNOWN
     Route: 048
     Dates: start: 20090129
  4. NEXIUM [Suspect]
     Active Substance: ESOMEPRAZOLE MAGNESIUM
     Indication: Gastrooesophageal reflux disease
     Dosage: UNKNOWN
     Route: 048
     Dates: start: 200901, end: 201312
  5. PRILOSEC [Suspect]
     Active Substance: OMEPRAZOLE MAGNESIUM
     Indication: Gastrooesophageal reflux disease
     Route: 048
     Dates: start: 2000, end: 2018
  6. PRILOSEC [Suspect]
     Active Substance: OMEPRAZOLE MAGNESIUM
     Indication: Gastrooesophageal reflux disease
     Dosage: GENERIC40.0MG UNKNOWN
     Route: 048
     Dates: start: 2000, end: 2018
  7. PRILOSEC [Suspect]
     Active Substance: OMEPRAZOLE MAGNESIUM
     Indication: Gastrooesophageal reflux disease
     Dosage: GENERIC40.0MG UNKNOWN
     Route: 048
     Dates: start: 20140516
  8. PRILOSEC [Suspect]
     Active Substance: OMEPRAZOLE MAGNESIUM
     Indication: Gastrooesophageal reflux disease
     Dosage: UNKNOWN
     Route: 048
     Dates: start: 200605, end: 200609
  9. PRILOSEC [Suspect]
     Active Substance: OMEPRAZOLE MAGNESIUM
     Indication: Gastrooesophageal reflux disease
     Dosage: UNKNOWN
     Route: 048
     Dates: start: 201302, end: 201806
  10. DEXILANT [Suspect]
     Active Substance: DEXLANSOPRAZOLE
     Indication: Gastrooesophageal reflux disease
     Dosage: 60.0MG UNKNOWN
     Route: 065
     Dates: start: 2000, end: 2018
  11. DEXILANT [Suspect]
     Active Substance: DEXLANSOPRAZOLE
     Indication: Gastrooesophageal reflux disease
     Dosage: 60.0MG UNKNOWN
     Route: 065
     Dates: start: 20130915
  12. DEXILANT [Suspect]
     Active Substance: DEXLANSOPRAZOLE
     Indication: Gastrooesophageal reflux disease
     Dosage: 60.0MG UNKNOWN
     Route: 065
     Dates: start: 201312, end: 201402
  13. PREVACID [Suspect]
     Active Substance: LANSOPRAZOLE
     Indication: Gastrooesophageal reflux disease
     Dosage: 30.0MG UNKNOWN
     Route: 065
     Dates: start: 2000, end: 2018
  14. PREVACID [Suspect]
     Active Substance: LANSOPRAZOLE
     Indication: Gastrooesophageal reflux disease
     Dosage: 30.0MG UNKNOWN
     Route: 065
     Dates: start: 20070117
  15. PREVACID [Suspect]
     Active Substance: LANSOPRAZOLE
     Indication: Gastrooesophageal reflux disease
     Dosage: UNKNOWN
     Route: 065
  16. PROTONIX [Suspect]
     Active Substance: PANTOPRAZOLE SODIUM
     Indication: Gastrooesophageal reflux disease
     Dosage: GENERIC40.0MG UNKNOWN
     Route: 065
     Dates: start: 2000, end: 2018
  17. PROTONIX [Suspect]
     Active Substance: PANTOPRAZOLE SODIUM
     Indication: Gastrooesophageal reflux disease
     Dosage: GENERIC40.0MG UNKNOWN
     Route: 065
     Dates: start: 20140228
  18. PROTONIX [Suspect]
     Active Substance: PANTOPRAZOLE SODIUM
     Indication: Gastrooesophageal reflux disease
     Dosage: 40.0MG UNKNOWN
     Route: 048
     Dates: start: 20140224
  19. PROTONIX [Suspect]
     Active Substance: PANTOPRAZOLE SODIUM
     Indication: Gastrooesophageal reflux disease
     Dosage: GENERIC40.0MG UNKNOWN
     Route: 065
     Dates: start: 201402
  20. CRESTOR [Concomitant]
     Active Substance: ROSUVASTATIN CALCIUM
     Indication: Blood cholesterol increased
     Route: 065
     Dates: start: 2009, end: 2016
  21. IBUPROFEN [Concomitant]
     Active Substance: IBUPROFEN
     Indication: Pain
     Route: 065
     Dates: start: 2005, end: 2017
  22. PEPCID [Concomitant]
     Active Substance: FAMOTIDINE
     Route: 065
     Dates: start: 2019
  23. PEPCID [Concomitant]
     Active Substance: FAMOTIDINE
     Dosage: GENERIC
     Route: 065
     Dates: start: 2019
  24. RANITIDINE [Concomitant]
     Active Substance: RANITIDINE
     Route: 065
     Dates: start: 2018
  25. TETRACYCLINE HYDROCHLORIDE [Concomitant]
     Active Substance: TETRACYCLINE HYDROCHLORIDE
     Route: 065
     Dates: start: 20070927
  26. TRIMETHOPRIM [Concomitant]
     Active Substance: TRIMETHOPRIM
     Route: 065
     Dates: start: 20070927
  27. VANCOMYCIN HYDROCHLORIDE [Concomitant]
     Active Substance: VANCOMYCIN HYDROCHLORIDE
     Route: 065
     Dates: start: 20070927
  28. ZITHROMAX [Concomitant]
     Active Substance: AZITHROMYCIN DIHYDRATE
     Route: 065
     Dates: start: 20070927
  29. ZYVOX [Concomitant]
     Active Substance: LINEZOLID
     Route: 065
     Dates: start: 20070927
  30. CARBAMAZEPINE [Concomitant]
     Active Substance: CARBAMAZEPINE
     Route: 065
     Dates: start: 20070927
  31. DEPAKOTE [Concomitant]
     Active Substance: DIVALPROEX SODIUM
     Route: 065
     Dates: start: 20070927
  32. DILANTIN [Concomitant]
     Active Substance: PHENYTOIN
     Route: 065
     Dates: start: 20070927
  33. GABAPENTIN [Concomitant]
     Active Substance: GABAPENTIN
     Route: 065
     Dates: start: 20070927
  34. GABITRIL [Concomitant]
     Active Substance: TIAGABINE HYDROCHLORIDE
     Route: 065
     Dates: start: 20070927
  35. KEPPRA [Concomitant]
     Active Substance: LEVETIRACETAM
     Route: 065
     Dates: start: 20070927
  36. LAMICTAL [Concomitant]
     Active Substance: LAMOTRIGINE
     Route: 065
     Dates: start: 20070927
  37. TOPAMAX [Concomitant]
     Active Substance: TOPIRAMATE
     Route: 065
     Dates: start: 20070927
  38. TRILEPTAL [Concomitant]
     Active Substance: OXCARBAZEPINE
     Route: 065
     Dates: start: 20070927
  39. VALPROIC ACID [Concomitant]
     Active Substance: VALPROIC ACID
     Route: 065
     Dates: start: 20070927
  40. ZONEGRAN [Concomitant]
     Active Substance: ZONISAMIDE
     Route: 065
     Dates: start: 20070927
  41. WELLBUTRIN XL [Concomitant]
     Active Substance: BUPROPION HYDROCHLORIDE
     Route: 065
     Dates: start: 20080115
  42. LEXAPRO [Concomitant]
     Active Substance: ESCITALOPRAM OXALATE
     Route: 065
     Dates: start: 20080115
  43. KLONOPIN [Concomitant]
     Active Substance: CLONAZEPAM
     Route: 065
     Dates: start: 20080115
  44. IMIPRAMINE HYDROCHLORIDE [Concomitant]
     Active Substance: IMIPRAMINE HYDROCHLORIDE
     Route: 065
     Dates: start: 20080115
  45. VISTARIL [Concomitant]
     Active Substance: HYDROXYZINE PAMOATE
     Route: 065
     Dates: start: 20080115
  46. IMIPRAMINE [Concomitant]
     Active Substance: IMIPRAMINE
     Route: 065
     Dates: start: 20040705
  47. ELMIRON [Concomitant]
     Active Substance: PENTOSAN POLYSULFATE SODIUM
     Route: 065
     Dates: start: 20120731
  48. CLOBETASOL [Concomitant]
     Active Substance: CLOBETASOL
     Route: 065
     Dates: start: 20130403
  49. NAPROXEN [Concomitant]
     Active Substance: NAPROXEN
     Route: 065
     Dates: start: 20131005
  50. TOLTERODINE [Concomitant]
     Active Substance: TOLTERODINE
     Route: 065
     Dates: start: 20140317
  51. BENZONATATE [Concomitant]
     Active Substance: BENZONATATE
     Route: 065
     Dates: start: 20140425
  52. FLUTICASONE [Concomitant]
     Active Substance: FLUTICASONE
     Route: 065
     Dates: start: 20140425
  53. CEFDINIR [Concomitant]
     Active Substance: CEFDINIR
     Route: 065
     Dates: start: 20140425
  54. VENTOLIN HFA [Concomitant]
     Active Substance: ALBUTEROL SULFATE
     Route: 065
     Dates: start: 20160429
  55. PRAMIPEXOLE [Concomitant]
     Active Substance: PRAMIPEXOLE
     Route: 065
     Dates: start: 20160720
  56. FLUCONAZOLE [Concomitant]
     Active Substance: FLUCONAZOLE
     Route: 065
     Dates: start: 20170112
  57. APRISO [Concomitant]
     Active Substance: MESALAMINE
     Route: 065
     Dates: start: 20180502
  58. EFFEXOR [Concomitant]
     Active Substance: VENLAFAXINE HYDROCHLORIDE
     Route: 065
     Dates: start: 20041213
  59. NITROFURANTOIN [Concomitant]
     Active Substance: NITROFURANTOIN
     Route: 065
     Dates: start: 20050429
  60. PHENAZOPYRIDINE [Concomitant]
     Active Substance: PHENAZOPYRIDINE
     Route: 065
     Dates: start: 20050614
  61. AMOXICILLIN [Concomitant]
     Active Substance: AMOXICILLIN
     Route: 065
     Dates: start: 20050917
  62. AMMONIUM CHLORIDE\DEXTROMETHORPHAN\SODIUM CITRATE [Concomitant]
     Active Substance: AMMONIUM CHLORIDE\DEXTROMETHORPHAN\SODIUM CITRATE
     Route: 065
     Dates: start: 20070320
  63. VIGAMOX [Concomitant]
     Active Substance: MOXIFLOXACIN HYDROCHLORIDE
     Route: 065
     Dates: start: 20080506
  64. ESCITALOPRAM [Concomitant]
     Active Substance: ESCITALOPRAM OXALATE
  65. ROSUVASTATIN [Concomitant]
     Active Substance: ROSUVASTATIN
  66. MEDROL [Concomitant]
     Active Substance: METHYLPREDNISOLONE
  67. MESALAMINE [Concomitant]
     Active Substance: MESALAMINE
  68. WELLBUTRIN [Concomitant]
     Active Substance: BUPROPION HYDROCHLORIDE

REACTIONS (2)
  - Chronic kidney disease [Not Recovered/Not Resolved]
  - Renal failure [Not Recovered/Not Resolved]

NARRATIVE: CASE EVENT DATE: 20160419
